FAERS Safety Report 24089074 (Version 2)
Quarter: 2025Q2

REPORT INFORMATION
  Report Type: Spontaneous
  Country: US (occurrence: US)
  Receive Date: 20240715
  Receipt Date: 20250529
  Transmission Date: 20250716
  Serious: Yes (Death)
  Sender: CIPLA
  Company Number: US-CIPLA (EU) LIMITED-2024US04429

PATIENT

DRUGS (1)
  1. ALBUTEROL [Suspect]
     Active Substance: ALBUTEROL
     Indication: Asthma
     Route: 065

REACTIONS (3)
  - Asthma [Fatal]
  - Recalled product administered [Unknown]
  - Device delivery system issue [Unknown]
